FAERS Safety Report 6668251-3 (Version None)
Quarter: 2010Q2

REPORT INFORMATION
  Report Type: 
  Country: None (occurrence: None)
  Receive Date: 20100406
  Receipt Date: 20100325
  Transmission Date: 20101027
  Serious: Yes (Other)
  Sender: FDA-Public Use
  Company Number: US-JNJFOC-20100400612

PATIENT
  Sex: Male
  Weight: 102.06 kg

DRUGS (5)
  1. DURAGESIC-100 [Suspect]
     Indication: INTERVERTEBRAL DISC DEGENERATION
     Route: 062
  2. DURAGESIC-100 [Suspect]
     Indication: ABDOMINAL PAIN UPPER
     Route: 062
  3. TOPAMAX [Concomitant]
     Indication: MIGRAINE
     Route: 048
  4. ACIPHEX [Concomitant]
     Indication: ULCER
     Route: 048
  5. VYVANSE [Concomitant]
     Indication: ATTENTION DEFICIT/HYPERACTIVITY DISORDER
     Route: 048

REACTIONS (2)
  - INADEQUATE ANALGESIA [None]
  - PANCREATITIS [None]
